FAERS Safety Report 23858611 (Version 1)
Quarter: 2024Q2

REPORT INFORMATION
  Report Type: Spontaneous
  Country: VN (occurrence: VN)
  Receive Date: 20240515
  Receipt Date: 20240515
  Transmission Date: 20240716
  Serious: Yes (Other)
  Sender: FDA-Public Use
  Company Number: VN-002147023-PHHY2019VN134985

PATIENT
  Age: 29 Year
  Sex: Female

DRUGS (6)
  1. VOLTAREN [Suspect]
     Active Substance: DICLOFENAC SODIUM
     Indication: Postoperative analgesia
     Dosage: 100 MG, UNK
     Route: 050
     Dates: start: 20190107, end: 20190107
  2. CARBETOCIN [Concomitant]
     Active Substance: CARBETOCIN
     Indication: Product used for unknown indication
     Dosage: 100 MG/ML, UNK
     Route: 065
  3. GENTAMICIN [Concomitant]
     Active Substance: GENTAMICIN
     Indication: Product used for unknown indication
     Dosage: 80 MG, UNK
     Route: 065
  4. ACETAMINOPHEN [Concomitant]
     Active Substance: ACETAMINOPHEN
     Indication: Product used for unknown indication
     Dosage: 200 MG, UNK
     Route: 065
  5. OXYTOCIN [Concomitant]
     Active Substance: OXYTOCIN
     Indication: Product used for unknown indication
     Route: 065
  6. LIDOCAINE ^KABI PHARMACIA^ [Concomitant]
     Indication: Product used for unknown indication
     Dosage: 2 ML, QD
     Route: 065

REACTIONS (4)
  - Eye swelling [Unknown]
  - Eye allergy [Recovered/Resolved]
  - Hypersensitivity [Recovered/Resolved]
  - Purpura [Unknown]

NARRATIVE: CASE EVENT DATE: 20190107
